FAERS Safety Report 24372339 (Version 3)
Quarter: 2024Q4

REPORT INFORMATION
  Report Type: Report from Study
  Country: IN (occurrence: IN)
  Receive Date: 20240927
  Receipt Date: 20241128
  Transmission Date: 20250114
  Serious: Yes (Hospitalization, Other)
  Sender: ROCHE
  Company Number: IN-ROCHE-10000084291

PATIENT
  Age: 71 Year
  Sex: Male

DRUGS (1)
  1. TECENTRIQ [Suspect]
     Active Substance: ATEZOLIZUMAB
     Indication: Lung neoplasm malignant
     Route: 042
     Dates: start: 20231216

REACTIONS (7)
  - Pneumonia [Unknown]
  - Pulmonary haemorrhage [Unknown]
  - Leukaemia [Unknown]
  - Neoplasm progression [Unknown]
  - Asthenia [Unknown]
  - Drug ineffective [Unknown]
  - Malaise [Unknown]
